FAERS Safety Report 10050841 (Version 1)
Quarter: 2014Q1

REPORT INFORMATION
  Report Type: Spontaneous
  Country: US (occurrence: None)
  Receive Date: 20140328
  Receipt Date: 20140328
  Transmission Date: 20141002
  Serious: Yes (Death)
  Sender: FDA-Public Use
  Company Number: AUR-APL-2014-03261

PATIENT
  Age: 52 Year
  Sex: Male

DRUGS (2)
  1. PIPERACILLIN + TAZOBACTAM [Suspect]
     Indication: PRODUCT USED FOR UNKNOWN INDICATION
  2. DIPHENHYDRAMINE (DIPHENHYDRAMINE) [Suspect]
     Indication: PRODUCT USED FOR UNKNOWN INDICATION

REACTIONS (2)
  - Completed suicide [None]
  - Toxicity to various agents [None]
